FAERS Safety Report 8900803 (Version 1)
Quarter: 2012Q4

REPORT INFORMATION
  Report Type: 
  Country: CA (occurrence: CA)
  Receive Date: 20121109
  Receipt Date: 20121109
  Transmission Date: 20130627
  Serious: Yes (Hospitalization)
  Sender: FDA-Public Use
  Company Number: PHMT2007CA01113

PATIENT
  Age: 63 Year
  Sex: Female

DRUGS (2)
  1. SANDOSTATIN LAR [Suspect]
     Indication: INSULINOMA
     Dosage: 30 mg, every 3 weeks
     Route: 030
     Dates: start: 20051219
  2. SANDOSTATIN LAR [Suspect]
     Dates: start: 20070404

REACTIONS (3)
  - Tooth disorder [Unknown]
  - Blood pressure increased [Unknown]
  - Blood glucose decreased [Unknown]
